FAERS Safety Report 4485037-9 (Version None)
Quarter: 2004Q4

REPORT INFORMATION
  Report Type: 
  Country: None (occurrence: None)
  Receive Date: 20041022
  Receipt Date: 20041022
  Transmission Date: 20050328
  Serious: Yes (Hospitalization)
  Sender: FDA-Public Use
  Company Number: None

PATIENT
  Age: 77 Year
  Sex: Male
  Weight: 72.1 kg

DRUGS (19)
  1. WARFARIN SODIUM [Suspect]
     Indication: ATRIAL FIBRILLATION
     Dosage: ORAL
     Dates: end: 20040524
  2. ASCORBIC ACID [Concomitant]
  3. ACETAMINOPRHEN [Concomitant]
  4. CIPROFLOXACIN HCL [Concomitant]
  5. FUROSEIDE [Concomitant]
  6. DIGOXIN [Concomitant]
  7. CARBIDOPA AND LEVODOPA [Concomitant]
  8. ASPIRIN [Concomitant]
  9. METOPROLOL SUCCINATE [Concomitant]
  10. SERTRALINE HCL [Concomitant]
  11. PRIMIDONE [Concomitant]
  12. AMLODIPINE BESYLATE [Concomitant]
  13. SIMVASTATIN [Concomitant]
  14. POTASSIUM CHLORIDE [Concomitant]
  15. MULTIVITAMINS/MINERALS [Concomitant]
  16. CAPTOPRIL [Concomitant]
  17. AMIODARONE HCL [Concomitant]
  18. NITROGLYCERIN [Concomitant]
  19. COUMADIN [Concomitant]

REACTIONS (2)
  - LOWER GASTROINTESTINAL HAEMORRHAGE [None]
  - UPPER GASTROINTESTINAL HAEMORRHAGE [None]
